FAERS Safety Report 24700904 (Version 1)
Quarter: 2024Q4

REPORT INFORMATION
  Report Type: Report from Study
  Country: IN (occurrence: IN)
  Receive Date: 20241205
  Receipt Date: 20241205
  Transmission Date: 20250115
  Serious: Yes (Hospitalization)
  Sender: ALEXION PHARMACEUTICALS
  Company Number: IN-AstraZeneca-CH-00758208A

PATIENT
  Age: 58 Year
  Weight: 57 kg

DRUGS (10)
  1. OSIMERTINIB [Suspect]
     Active Substance: OSIMERTINIB
     Indication: Non-small cell lung cancer
     Dosage: 80 MILLIGRAM, BID
  2. OSIMERTINIB [Suspect]
     Active Substance: OSIMERTINIB
     Dosage: 80 MILLIGRAM, BID
  3. OSIMERTINIB [Suspect]
     Active Substance: OSIMERTINIB
     Dosage: 80 MILLIGRAM, BID
  4. OSIMERTINIB [Suspect]
     Active Substance: OSIMERTINIB
     Dosage: 80 MILLIGRAM, BID
  5. OSIMERTINIB [Suspect]
     Active Substance: OSIMERTINIB
     Dosage: 160 MILLIGRAM
  6. OSIMERTINIB [Suspect]
     Active Substance: OSIMERTINIB
     Dosage: 160 MILLIGRAM
  7. OSIMERTINIB [Suspect]
     Active Substance: OSIMERTINIB
     Dosage: 160 MILLIGRAM
  8. OSIMERTINIB [Suspect]
     Active Substance: OSIMERTINIB
     Dosage: 160 MILLIGRAM
  9. METOCLOPRAMIDE HYDROCHLORIDE [Concomitant]
     Active Substance: METOCLOPRAMIDE HYDROCHLORIDE
  10. METOCLOPRAMIDE HYDROCHLORIDE [Concomitant]
     Active Substance: METOCLOPRAMIDE HYDROCHLORIDE
     Route: 065

REACTIONS (4)
  - Mouth ulceration [Recovered/Resolved with Sequelae]
  - Hiccups [Recovered/Resolved with Sequelae]
  - Feeling hot [Recovered/Resolved with Sequelae]
  - Feeding disorder [Recovered/Resolved with Sequelae]
